FAERS Safety Report 10241257 (Version 6)
Quarter: 2014Q3

REPORT INFORMATION
  Report Type: Spontaneous
  Country: GB (occurrence: GB)
  Receive Date: 20140617
  Receipt Date: 20140911
  Transmission Date: 20150326
  Serious: Yes (Other)
  Sender: FDA-Public Use
  Company Number: PHFR2014GB004258

PATIENT
  Age: 54 Year
  Sex: Male

DRUGS (3)
  1. CLOZARIL [Suspect]
     Active Substance: CLOZAPINE
     Dosage: 250 MG AND 5 ML (IN THE MORNING) AND 300 MG AND 6 ML (IN THE EVENING)
  2. CLOZARIL [Suspect]
     Active Substance: CLOZAPINE
     Dosage: 50 MG
  3. CLOZARIL [Suspect]
     Active Substance: CLOZAPINE
     Indication: SCHIZOPHRENIA
     Dosage: UKN
     Route: 048
     Dates: start: 20040216

REACTIONS (3)
  - Gastrointestinal cancer metastatic [Unknown]
  - Anaemia [Unknown]
  - Schizophrenia [Unknown]

NARRATIVE: CASE EVENT DATE: 20140617
